FAERS Safety Report 11440674 (Version 1)
Quarter: 2015Q3

REPORT INFORMATION
  Report Type: Spontaneous
  Country: US (occurrence: US)
  Receive Date: 20150821
  Receipt Date: 20150821
  Transmission Date: 20151125
  Serious: No
  Sender: FDA-Public Use
  Company Number: US-ELI_LILLY_AND_COMPANY-US200708000386

PATIENT
  Age: 37 Year
  Sex: Female

DRUGS (1)
  1. CYMBALTA [Suspect]
     Active Substance: DULOXETINE HYDROCHLORIDE
     Indication: DEPRESSION
     Dosage: 30 MG, DAILY (1/D)
     Dates: start: 200707, end: 20070724

REACTIONS (9)
  - Feeling abnormal [Unknown]
  - Confusional state [Unknown]
  - Crying [Unknown]
  - Paraesthesia [Unknown]
  - Influenza like illness [Unknown]
  - Muscle twitching [Unknown]
  - Disturbance in attention [Unknown]
  - Nausea [Unknown]
  - Anxiety [Unknown]

NARRATIVE: CASE EVENT DATE: 200707
